FAERS Safety Report 7090189-0 (Version None)
Quarter: 2010Q4

REPORT INFORMATION
  Report Type: 
  Country: None (occurrence: None)
  Receive Date: 20101105
  Receipt Date: 20101105
  Transmission Date: 20110411
  Serious: No
  Sender: FDA-Public Use
  Company Number: None

PATIENT
  Age: 10 Year
  Sex: Female

DRUGS (2)
  1. PPD [Suspect]
     Indication: VACCINIA VIRUS INFECTION
     Dosage: ID R FA
     Route: 023
     Dates: start: 20101011
  2. INFLUENZA [Suspect]
     Dosage: IM LD
     Route: 030
     Dates: start: 20100929

REACTIONS (1)
  - DIZZINESS [None]
